FAERS Safety Report 15029573 (Version 1)
Quarter: 2018Q2

REPORT INFORMATION
  Report Type: Spontaneous
  Country: TR (occurrence: TR)
  Receive Date: 20180619
  Receipt Date: 20180619
  Transmission Date: 20180711
  Serious: Yes (Other)
  Sender: FDA-Public Use
  Company Number: TR-ASTRAZENECA-2018SE78150

PATIENT
  Sex: Female

DRUGS (5)
  1. FORZIGA [Suspect]
     Active Substance: DAPAGLIFLOZIN
     Route: 048
  2. CYMBALTA [Suspect]
     Active Substance: DULOXETINE HYDROCHLORIDE
     Route: 065
  3. NEBIVOLOL HYDROCHLORIDE [Suspect]
     Active Substance: NEBIVOLOL HYDROCHLORIDE
     Route: 065
  4. ALIPZA [Suspect]
     Active Substance: PITAVASTATIN
     Route: 065
  5. ELIQUIS [Suspect]
     Active Substance: APIXABAN
     Dosage: 0.5 MG
     Route: 065

REACTIONS (1)
  - Cerebrovascular accident [Unknown]
